FAERS Safety Report 10047066 (Version 2)
Quarter: 2014Q1

REPORT INFORMATION
  Report Type: Spontaneous
  Country: US (occurrence: US)
  Receive Date: 20140331
  Receipt Date: 20140331
  Transmission Date: 20141002
  Serious: No
  Sender: FDA-Public Use
  Company Number: US-MYLANLABS-2013S1005107

PATIENT
  Age: 62 Year
  Sex: Male
  Weight: 94.35 kg

DRUGS (37)
  1. VITAMIN B [Concomitant]
  2. FENTANYL TRANSDERMAL SYSTEM [Suspect]
     Indication: NECK PAIN
     Dosage: Q72HR
     Route: 062
     Dates: start: 2012, end: 2012
  3. FENTANYL TRANSDERMAL SYSTEM [Suspect]
     Indication: HEADACHE
     Dosage: Q72HR
     Route: 062
     Dates: start: 2012, end: 2012
  4. FENTANYL TRANSDERMAL SYSTEM [Suspect]
     Indication: INTERVERTEBRAL DISC PROTRUSION
     Dosage: Q72HR
     Route: 062
     Dates: start: 2012, end: 2012
  5. FENTANYL TRANSDERMAL SYSTEM [Suspect]
     Indication: INTERVERTEBRAL DISC DEGENERATION
     Dosage: Q72HR
     Route: 062
     Dates: start: 2012, end: 2012
  6. FENTANYL TRANSDERMAL SYSTEM [Suspect]
     Indication: NECK PAIN
     Dosage: Q72HR
     Route: 062
     Dates: start: 2012, end: 2012
  7. FENTANYL TRANSDERMAL SYSTEM [Suspect]
     Indication: HEADACHE
     Dosage: Q72HR
     Route: 062
     Dates: start: 2012, end: 2012
  8. FENTANYL TRANSDERMAL SYSTEM [Suspect]
     Indication: INTERVERTEBRAL DISC PROTRUSION
     Dosage: Q72HR
     Route: 062
     Dates: start: 2012, end: 2012
  9. FENTANYL TRANSDERMAL SYSTEM [Suspect]
     Indication: INTERVERTEBRAL DISC DEGENERATION
     Dosage: Q72HR
     Route: 062
     Dates: start: 2012, end: 2012
  10. FENTANYL TRANSDERMAL SYSTEM [Suspect]
     Indication: NECK PAIN
     Dosage: Q72H TO Q48H
     Route: 062
     Dates: start: 2012, end: 2012
  11. FENTANYL TRANSDERMAL SYSTEM [Suspect]
     Indication: HEADACHE
     Dosage: Q72H TO Q48H
     Route: 062
     Dates: start: 2012, end: 2012
  12. FENTANYL TRANSDERMAL SYSTEM [Suspect]
     Indication: INTERVERTEBRAL DISC PROTRUSION
     Dosage: Q72H TO Q48H
     Route: 062
     Dates: start: 2012, end: 2012
  13. FENTANYL TRANSDERMAL SYSTEM [Suspect]
     Indication: INTERVERTEBRAL DISC DEGENERATION
     Dosage: Q72H TO Q48H
     Route: 062
     Dates: start: 2012, end: 2012
  14. FENTANYL TRANSDERMAL SYSTEM [Suspect]
     Indication: NECK PAIN
     Dosage: Q48HR
     Route: 062
     Dates: start: 2012, end: 20130317
  15. FENTANYL TRANSDERMAL SYSTEM [Suspect]
     Indication: HEADACHE
     Dosage: Q48HR
     Route: 062
     Dates: start: 2012, end: 20130317
  16. FENTANYL TRANSDERMAL SYSTEM [Suspect]
     Indication: INTERVERTEBRAL DISC PROTRUSION
     Dosage: Q48HR
     Route: 062
     Dates: start: 2012, end: 20130317
  17. FENTANYL TRANSDERMAL SYSTEM [Suspect]
     Indication: INTERVERTEBRAL DISC DEGENERATION
     Dosage: Q48HR
     Route: 062
     Dates: start: 2012, end: 20130317
  18. PERCOCET [Concomitant]
     Indication: PAIN
     Dosage: TAKES 8 TO 9 PER DAY
  19. IBUPROFEN [Concomitant]
     Indication: PAIN
  20. LISINOPRIL [Concomitant]
  21. BABY ASPIRIN [Concomitant]
  22. ENABLEX [Concomitant]
  23. FLOMAX /00889901/ [Concomitant]
  24. OXYBUTYNIN [Concomitant]
  25. CELEXA [Concomitant]
  26. XANAX [Concomitant]
  27. PRILOSEC [Concomitant]
  28. STOOL SOFTENER [Concomitant]
  29. PROBIOTICS [Concomitant]
  30. FIBER [Concomitant]
  31. SENNA [Concomitant]
  32. HERBAL LAXATIVE /05904801/ [Concomitant]
  33. SAW PALMETTO [Concomitant]
  34. ZANTAC [Concomitant]
  35. MULTIVITAMIN [Concomitant]
  36. VITAMIN C [Concomitant]
  37. VITAMIN D [Concomitant]

REACTIONS (5)
  - Drug effect decreased [Not Recovered/Not Resolved]
  - Pain [Not Recovered/Not Resolved]
  - Withdrawal syndrome [Not Recovered/Not Resolved]
  - Lethargy [Not Recovered/Not Resolved]
  - Pollakiuria [Not Recovered/Not Resolved]
